FAERS Safety Report 9282720 (Version 1)
Quarter: 2013Q2

REPORT INFORMATION
  Report Type: Spontaneous
  Country: US (occurrence: US)
  Receive Date: 20130510
  Receipt Date: 20130510
  Transmission Date: 20140414
  Serious: No
  Sender: FDA-Public Use
  Company Number: US-009507513-1305USA002288

PATIENT
  Sex: Male

DRUGS (1)
  1. SAPHRIS [Suspect]
     Indication: BIPOLAR DISORDER
     Dosage: 10 MG, QD AT NIGHT
     Route: 060
     Dates: start: 20130426, end: 20130429

REACTIONS (3)
  - Somnolence [Unknown]
  - Off label use [Unknown]
  - Inappropriate schedule of drug administration [Unknown]
